FAERS Safety Report 7502966-X (Version None)
Quarter: 2011Q2

REPORT INFORMATION
  Report Type: 
  Country: None (occurrence: None)
  Receive Date: 20110525
  Receipt Date: 20100914
  Transmission Date: 20111010
  Serious: No
  Sender: FDA-Public Use
  Company Number: US-NOVEN-ALL1-2010-04876

PATIENT
  Sex: Male
  Weight: 25.397 kg

DRUGS (6)
  1. DAYTRANA [Suspect]
     Dosage: 20 MG, 1X/DAY:QD (TWO 10 MG PATCHES)
     Route: 062
     Dates: start: 20100828, end: 20100830
  2. SINGULAIR [Concomitant]
     Dosage: 5 MG, 1X/DAY:QD
     Route: 048
     Dates: start: 19960101
  3. DAYTRANA [Suspect]
     Dosage: 30 MG, 1X/DAY:QD (THREE 10 MG PATCHES)
     Route: 062
     Dates: start: 20100831, end: 20100913
  4. NEURONTIN [Concomitant]
     Dosage: 300 MG, 1X/DAY:QD
     Route: 048
     Dates: start: 19960101
  5. DAYTRANA [Suspect]
     Dosage: 10 MG, 1X/DAY:QD
     Route: 062
     Dates: start: 20100821, end: 20100827
  6. DAYTRANA [Suspect]
     Dosage: 30 MG, 1X/DAY:QD
     Route: 062
     Dates: start: 20100914

REACTIONS (5)
  - APPLICATION SITE PAIN [None]
  - APPLICATION SITE IRRITATION [None]
  - PRODUCT QUALITY ISSUE [None]
  - NAUSEA [None]
  - APPLICATION SITE URTICARIA [None]
